FAERS Safety Report 23467736 (Version 2)
Quarter: 2025Q1

REPORT INFORMATION
  Report Type: Spontaneous
  Country: US (occurrence: US)
  Receive Date: 20240201
  Receipt Date: 20250106
  Transmission Date: 20250408
  Serious: No
  Sender: INCYTE
  Company Number: US-INCYTE CORPORATION-2024IN000307

PATIENT

DRUGS (3)
  1. OPZELURA [Suspect]
     Active Substance: RUXOLITINIB PHOSPHATE
     Indication: Dermatitis atopic
     Dosage: 60 GRAM, BID (FIRST TUBE) (APPLY A THIN LAYER TOPICALLY TWICE DAILY)
     Route: 061
  2. OPZELURA [Suspect]
     Active Substance: RUXOLITINIB PHOSPHATE
     Dosage: UNK (SECOND TUBE) (APPLY A THIN LAYER TOPICALLY TWICE DAILY)
     Route: 061
  3. OPZELURA [Suspect]
     Active Substance: RUXOLITINIB PHOSPHATE
     Dosage: UNK (THIRD TUBE) (APPLY A THIN LAYER TOPICALLY TWICE DAILY)
     Route: 061

REACTIONS (4)
  - Pruritus [Unknown]
  - Skin irritation [Unknown]
  - Product physical issue [Unknown]
  - Drug ineffective [Unknown]
